FAERS Safety Report 14772443 (Version 8)
Quarter: 2021Q4

REPORT INFORMATION
  Report Type: Report from Study
  Country: DE (occurrence: DE)
  Receive Date: 20180418
  Receipt Date: 20211106
  Transmission Date: 20220304
  Serious: Yes (Death, Life-Threatening, Other)
  Sender: FDA-Public Use
  Company Number: DE-002147023-PHHY2017DE106432

PATIENT
  Age: 55 Year
  Sex: Male

DRUGS (11)
  1. BORTEZOMIB [Suspect]
     Active Substance: BORTEZOMIB
     Indication: Plasma cell myeloma
     Dosage: 1.3 MILLIGRAM
     Route: 042
     Dates: start: 20170502, end: 20170516
  2. BORTEZOMIB [Suspect]
     Active Substance: BORTEZOMIB
     Dosage: UNK
     Route: 042
     Dates: start: 20170517, end: 20170614
  3. BORTEZOMIB [Suspect]
     Active Substance: BORTEZOMIB
     Dosage: 1.3 MILLIGRAM
     Route: 042
     Dates: start: 20170615, end: 20170622
  4. DEXAMETHASONE [Suspect]
     Active Substance: DEXAMETHASONE
     Indication: Plasma cell myeloma
     Dosage: 20 MILLIGRAM
     Route: 048
     Dates: start: 20170502, end: 20170516
  5. DEXAMETHASONE [Suspect]
     Active Substance: DEXAMETHASONE
     Dosage: UNK
     Route: 048
     Dates: start: 20170517, end: 20170614
  6. DEXAMETHASONE [Suspect]
     Active Substance: DEXAMETHASONE
     Dosage: 20 MILLIGRAM
     Route: 048
     Dates: start: 20170615, end: 20170622
  7. FARYDAK [Suspect]
     Active Substance: PANOBINOSTAT
     Indication: Plasma cell myeloma
     Dosage: 10 MG, QD
     Route: 048
     Dates: start: 20170228, end: 20170624
  8. FARYDAK [Suspect]
     Active Substance: PANOBINOSTAT
     Dosage: UNK
     Route: 048
     Dates: start: 20170517, end: 20170622
  9. FARYDAK [Suspect]
     Active Substance: PANOBINOSTAT
     Dosage: 10 MG, QD
     Route: 048
     Dates: start: 20170502, end: 20170516
  10. DARATUMUMAB [Concomitant]
     Active Substance: DARATUMUMAB
     Indication: Malignant neoplasm progression
     Dosage: 46 MILLIGRAM, QD
     Route: 065
  11. DARATUMUMAB [Concomitant]
     Active Substance: DARATUMUMAB
     Indication: Plasma cell myeloma

REACTIONS (24)
  - Immunosuppression [Fatal]
  - Heart rate increased [Fatal]
  - Coronary artery disease [Fatal]
  - Lymphadenopathy [Fatal]
  - Hepatic lesion [Unknown]
  - Splenomegaly [Unknown]
  - Malignant neoplasm progression [Fatal]
  - Plasma cell myeloma [Fatal]
  - Ascites [Unknown]
  - Rib fracture [Unknown]
  - Bone pain [Not Recovered/Not Resolved]
  - Pancytopenia [Not Recovered/Not Resolved]
  - Septic shock [Fatal]
  - Pulmonary oedema [Unknown]
  - Hyperaemia [Unknown]
  - Oedema [Unknown]
  - Infusion related reaction [Recovered/Resolved]
  - Pleural effusion [Unknown]
  - Thrombocytopenia [Recovering/Resolving]
  - Diarrhoea [Recovered/Resolved]
  - Metastases to liver [Unknown]
  - Tachycardia [Not Recovered/Not Resolved]
  - Pyrexia [Not Recovered/Not Resolved]
  - Hypotension [Not Recovered/Not Resolved]

NARRATIVE: CASE EVENT DATE: 20170503
